FAERS Safety Report 8240885-4 (Version None)
Quarter: 2012Q1

REPORT INFORMATION
  Report Type: 
  Country: None (occurrence: None)
  Receive Date: 20120328
  Receipt Date: 20120321
  Transmission Date: 20120608
  Serious: Yes (Hospitalization)
  Sender: FDA-Public Use
  Company Number: JP-VERTEX PHARMACEUTICALS INC.-AE-2012-003362

PATIENT
  Age: 58 Year
  Sex: Female

DRUGS (16)
  1. MAGMITT [Concomitant]
  2. REBETOL [Concomitant]
     Indication: HEPATITIS C
     Route: 048
     Dates: start: 20120301, end: 20120305
  3. BIO-THREE [Concomitant]
  4. MEDICON [Concomitant]
  5. PEGINTERON [Concomitant]
     Indication: HEPATITIS C
     Route: 058
     Dates: start: 20120301, end: 20120305
  6. THEOLANG [Concomitant]
  7. LEVOTHYROXINE SODIUM [Concomitant]
  8. FERROUS CITRATE [Concomitant]
  9. OLOPATADINE HCL [Concomitant]
  10. FOIPAN [Concomitant]
     Route: 048
  11. ZOLPIDEM [Concomitant]
  12. TELAVIC (TELAPREVIR) [Suspect]
     Indication: HEPATITIS C
     Route: 048
     Dates: start: 20120301, end: 20120305
  13. METHYCOBAL [Concomitant]
  14. ROZAGOOD [Concomitant]
  15. FAMOTIDINE [Concomitant]
  16. DIOVAN [Concomitant]

REACTIONS (1)
  - RENAL DISORDER [None]
